FAERS Safety Report 12645068 (Version 1)
Quarter: 2016Q3

REPORT INFORMATION
  Report Type: Spontaneous
  Country: KZ (occurrence: KZ)
  Receive Date: 20160811
  Receipt Date: 20160811
  Transmission Date: 20161109
  Serious: Yes (Hospitalization)
  Sender: FDA-Public Use
  Company Number: KZ-JNJFOC-20160803169

PATIENT
  Age: 26 Year
  Sex: Female
  Weight: 66 kg

DRUGS (7)
  1. FINLEPSIN [Suspect]
     Active Substance: CARBAMAZEPINE
     Indication: PROPHYLAXIS
     Route: 048
     Dates: start: 20160630, end: 20160710
  2. CAPTOPRIL. [Concomitant]
     Active Substance: CAPTOPRIL
     Indication: HYPERTENSION
     Route: 048
     Dates: start: 20160703, end: 20160703
  3. MAGNESIUM SULFATE. [Concomitant]
     Active Substance: MAGNESIUM SULFATE
     Indication: HYPERTENSION
     Route: 030
     Dates: start: 20160703, end: 20160703
  4. LEVOMEPROMAZINE [Suspect]
     Active Substance: LEVOMEPROMAZINE
     Indication: SCHIZOPHRENIA
     Route: 030
     Dates: start: 20160627, end: 20160710
  5. AMINAZIN [Suspect]
     Active Substance: CHLORPROMAZINE HYDROCHLORIDE
     Indication: SEDATION
     Route: 030
     Dates: start: 20160625, end: 20160704
  6. HALOPERIDOL. [Concomitant]
     Active Substance: HALOPERIDOL
     Indication: SCHIZOPHRENIA
     Route: 030
     Dates: start: 20160625, end: 20160625
  7. XEPLION [Suspect]
     Active Substance: PALIPERIDONE PALMITATE
     Indication: SCHIZOPHRENIA
     Route: 030
     Dates: start: 20160701

REACTIONS (6)
  - Swollen tongue [Recovered/Resolved]
  - Body temperature increased [Recovered/Resolved]
  - Strangury [Recovered/Resolved]
  - Dyspnoea [Recovered/Resolved]
  - Rash generalised [Recovered/Resolved]
  - Pruritus generalised [Recovered/Resolved]

NARRATIVE: CASE EVENT DATE: 20160710
